FAERS Safety Report 8304280-1 (Version None)
Quarter: 2012Q2

REPORT INFORMATION
  Report Type: 
  Country: None (occurrence: None)
  Receive Date: 20120423
  Receipt Date: 20120423
  Transmission Date: 20120825
  Serious: Yes (Hospitalization)
  Sender: FDA-Public Use
  Company Number: None

PATIENT
  Age: 48 Year
  Sex: Female
  Weight: 72.574 kg

DRUGS (1)
  1. DAPTOMYCIN [Suspect]
     Indication: URINARY TRACT INFECTION ENTEROCOCCAL
     Dosage: 680MG
     Route: 041
     Dates: start: 20120327, end: 20120405

REACTIONS (2)
  - BLOOD CREATINE PHOSPHOKINASE INCREASED [None]
  - PAIN [None]
